FAERS Safety Report 22588751 (Version 1)
Quarter: 2023Q2

REPORT INFORMATION
  Report Type: Spontaneous
  Country: US (occurrence: US)
  Receive Date: 20230612
  Receipt Date: 20230612
  Transmission Date: 20230722
  Serious: No
  Sender: FDA-Public Use
  Company Number: US-BRISTOL-MYERS SQUIBB COMPANY-2023-082096

PATIENT
  Age: 77 Year
  Sex: Female
  Weight: 64.41 kg

DRUGS (1)
  1. REVLIMID [Suspect]
     Active Substance: LENALIDOMIDE
     Indication: Plasma cell myeloma
     Dosage: QD 14DON 7DOFF
     Route: 048

REACTIONS (2)
  - White blood cell count decreased [Unknown]
  - Off label use [Unknown]
